FAERS Safety Report 7416201-4 (Version None)
Quarter: 2011Q2

REPORT INFORMATION
  Report Type: 
  Country: None (occurrence: None)
  Receive Date: 20110414
  Receipt Date: 20110403
  Transmission Date: 20111010
  Serious: Yes (Other)
  Sender: FDA-Public Use
  Company Number: US-BAYER-2011-029618

PATIENT
  Sex: Female

DRUGS (1)
  1. ONE A DAY WOMEN'S PRENATAL [Suspect]
     Route: 048

REACTIONS (1)
  - ABORTION SPONTANEOUS [None]
